FAERS Safety Report 10086467 (Version 4)
Quarter: 2014Q2

REPORT INFORMATION
  Report Type: Spontaneous
  Country: US (occurrence: US)
  Receive Date: 20140418
  Receipt Date: 20140610
  Transmission Date: 20141212
  Serious: Yes (Disabling)
  Sender: FDA-Public Use
  Company Number: US-009507513-1202USA00567

PATIENT
  Sex: Male
  Weight: 84.81 kg

DRUGS (3)
  1. PROPECIA [Suspect]
     Indication: ANDROGENETIC ALOPECIA
     Dosage: 1 MG, QD
     Route: 048
     Dates: start: 199807, end: 20001203
  2. PROPECIA [Suspect]
     Indication: ALOPECIA
     Dosage: 1 MG, QD
     Route: 048
     Dates: start: 20010327
  3. ROGAINE [Concomitant]
     Indication: ALOPECIA

REACTIONS (27)
  - Back injury [Recovered/Resolved]
  - Cognitive disorder [Not Recovered/Not Resolved]
  - Inguinal hernia repair [Unknown]
  - Chest pain [Unknown]
  - Fatigue [Unknown]
  - Gastritis [Unknown]
  - High risk sexual behaviour [Unknown]
  - Urinary hesitation [Unknown]
  - Haematuria [Not Recovered/Not Resolved]
  - Polypectomy [Unknown]
  - Hiatus hernia [Unknown]
  - Iron deficiency anaemia [Recovered/Resolved]
  - Protein urine present [Unknown]
  - Hyperlipidaemia [Unknown]
  - Flushing [Unknown]
  - Headache [Unknown]
  - Substance use [Unknown]
  - Impaired fasting glucose [Unknown]
  - Erectile dysfunction [Not Recovered/Not Resolved]
  - Adverse event [Unknown]
  - Penile oedema [Unknown]
  - Urethral stenosis [Unknown]
  - Nocturia [Unknown]
  - Gastrooesophageal reflux disease [Unknown]
  - Varicose vein operation [Unknown]
  - Sexual dysfunction [Not Recovered/Not Resolved]
  - Libido decreased [Unknown]
